FAERS Safety Report 9364475 (Version 1)
Quarter: 2013Q2

REPORT INFORMATION
  Report Type: Spontaneous
  Country: US (occurrence: US)
  Receive Date: 20130624
  Receipt Date: 20130624
  Transmission Date: 20140414
  Serious: Yes (Disabling, Other)
  Sender: FDA-Public Use
  Company Number: US-PFIZER INC-2013187646

PATIENT
  Age: 41 Year
  Sex: Female
  Weight: 73.02 kg

DRUGS (2)
  1. HYDROCORTISONE [Suspect]
     Indication: ADDISON^S DISEASE
     Dosage: 20MG 2TABLET IN MORNING AND ONE 20 MG TABLET AT NIGHT
     Dates: start: 201203
  2. SYNTHROID [Concomitant]
     Indication: THYROID DISORDER
     Dosage: 150 MCG DAILY

REACTIONS (1)
  - Skin ulcer [Unknown]
